FAERS Safety Report 6799590-3 (Version None)
Quarter: 2010Q2

REPORT INFORMATION
  Report Type: 
  Country: None (occurrence: None)
  Receive Date: 20100624
  Receipt Date: 20100614
  Transmission Date: 20101027
  Serious: Yes (Death)
  Sender: FDA-Public Use
  Company Number: 2009-5145

PATIENT
  Age: 71 Year
  Sex: Male

DRUGS (28)
  1. APOKYN [Suspect]
     Indication: PARKINSON'S DISEASE
     Dosage: (0.4 ML, 3-4 TIMES DAILY/AS REQUIRED); (0.2 ML, AS REQUIRED);
     Dates: start: 20081203
  2. LESCOL XL [Concomitant]
  3. QUALAQUIN (QUININE) [Concomitant]
  4. TRICOR [Concomitant]
  5. PLAVIX [Concomitant]
  6. STALEVO (STALEVO) [Concomitant]
  7. ZELAPAR (SELEGILINE HYDROCHLORIDE) [Concomitant]
  8. FLONASE [Concomitant]
  9. NITROQUICK (GLYCERYL TRINITRATE) [Concomitant]
  10. SAW PALMETTO (SERENOA REPENS) [Concomitant]
  11. OMEGA-3 FISH OIL (OMEGA-3 TRIGLYCERIDES) [Concomitant]
  12. ASCORBIC ACID [Concomitant]
  13. COLACE (DOCUSATE SODIUM) [Concomitant]
  14. VITAMIN E [Concomitant]
  15. CENTRUM SILVER (CENTRUM SILVER) [Concomitant]
  16. GABAPENTIN [Concomitant]
  17. PROVIGIL [Concomitant]
  18. CALCIUM WITH VITAMIN D (CALCIUM WITH VITAMIN D) [Concomitant]
  19. NYSTATIN CREAM (NYSTATIN) [Concomitant]
  20. ALLEGRA [Concomitant]
  21. TRIAMCINOLONE CREAM (TRIAMCINOLONE) [Concomitant]
  22. REQUIP XL [Concomitant]
  23. PROAMATINE [Concomitant]
  24. PEPCID [Concomitant]
  25. MAALOX PLUS (MAALOX PLUS /00258601/) [Concomitant]
  26. MILK OF MAGNESIA TAB [Concomitant]
  27. ROBITUSSIN DM (ROBITUSSIN /00288801/) [Concomitant]
  28. ALLANDERM-T (GRANULEX) [Concomitant]

REACTIONS (2)
  - ASPIRATION [None]
  - DYSPHAGIA [None]
